FAERS Safety Report 12126010 (Version 2)
Quarter: 2016Q1

REPORT INFORMATION
  Report Type: Spontaneous
  Country: US (occurrence: US)
  Receive Date: 20160229
  Receipt Date: 20160321
  Transmission Date: 20160526
  Serious: Yes (Hospitalization)
  Sender: FDA-Public Use
  Company Number: US-BIOCOMPATIBLES UK LTD-BTG00645

PATIENT

DRUGS (1)
  1. CROFAB [Suspect]
     Active Substance: CROTALIDAE POLYVALENT IMMUNE FAB (OVINE)
     Indication: SNAKE BITE
     Dosage: 21 VIALS TOTAL
     Dates: start: 200706

REACTIONS (9)
  - Haemoglobin A2 [Unknown]
  - Immune system disorder [Unknown]
  - Joint effusion [Unknown]
  - Respiratory disorder [Recovering/Resolving]
  - Asthma [Recovering/Resolving]
  - Antinuclear antibody positive [Unknown]
  - Back pain [Not Recovered/Not Resolved]
  - Arthralgia [Unknown]
  - Adverse drug reaction [Not Recovered/Not Resolved]

NARRATIVE: CASE EVENT DATE: 201509
